FAERS Safety Report 22387600 (Version 3)
Quarter: 2023Q2

REPORT INFORMATION
  Report Type: Spontaneous
  Country: PT (occurrence: None)
  Receive Date: 20230531
  Receipt Date: 20230621
  Transmission Date: 20230721
  Serious: Yes (Other)
  Sender: FDA-Public Use
  Company Number: PT-ROCHE-3356895

PATIENT
  Age: 61 Year
  Sex: Male

DRUGS (4)
  1. ATEZOLIZUMAB [Suspect]
     Active Substance: ATEZOLIZUMAB
     Indication: Product used for unknown indication
     Dosage: 1200MG TOT
     Route: 065
     Dates: start: 20221223, end: 20230526
  2. BEVACIZUMAB [Suspect]
     Active Substance: BEVACIZUMAB
     Indication: Product used for unknown indication
     Dosage: 15MG/KG (2000MG TOT)
     Route: 065
     Dates: start: 20221223, end: 20230526
  3. CARVEDILOL [Concomitant]
     Active Substance: CARVEDILOL
  4. LANSOPRAZOLE [Concomitant]
     Active Substance: LANSOPRAZOLE

REACTIONS (3)
  - Immune-mediated dermatitis [Unknown]
  - Rash [Recovering/Resolving]
  - Acquired phimosis [Recovering/Resolving]

NARRATIVE: CASE EVENT DATE: 20230321
